FAERS Safety Report 9642199 (Version 1)
Quarter: 2013Q4

REPORT INFORMATION
  Report Type: Spontaneous
  Country: GB (occurrence: GB)
  Receive Date: 20131024
  Receipt Date: 20131024
  Transmission Date: 20140711
  Serious: Yes (Other)
  Sender: FDA-Public Use
  Company Number: PHHY2013GB115470

PATIENT
  Age: 29 Year
  Sex: Female

DRUGS (4)
  1. METRONIDAZOLE [Suspect]
     Indication: HELICOBACTER INFECTION
     Dosage: 400 MG, BID
     Route: 048
     Dates: start: 20130926, end: 20130929
  2. CLARITYN [Concomitant]
  3. OMEPRAZOLE [Concomitant]
     Indication: HELICOBACTER INFECTION
  4. AMOXICILLIN [Concomitant]
     Indication: HELICOBACTER INFECTION

REACTIONS (7)
  - Fatigue [Not Recovered/Not Resolved]
  - Malaise [Not Recovered/Not Resolved]
  - Somnolence [Not Recovered/Not Resolved]
  - Headache [Not Recovered/Not Resolved]
  - Confusional state [Not Recovered/Not Resolved]
  - Dysgeusia [Not Recovered/Not Resolved]
  - Depression [Not Recovered/Not Resolved]
